FAERS Safety Report 4393995-6 (Version None)
Quarter: 2004Q3

REPORT INFORMATION
  Report Type: 
  Country: None (occurrence: None)
  Receive Date: 20040701
  Receipt Date: 20040621
  Transmission Date: 20050211
  Serious: Yes (Hospitalization, Disabling)
  Sender: FDA-Public Use
  Company Number: US-JNJFOC-20040505165

PATIENT
  Age: 61 Year
  Sex: Female
  Weight: 91.173 kg

DRUGS (19)
  1. REMICADE [Suspect]
     Indication: RHEUMATOID ARTHRITIS
     Dosage: 400 MG, INTRAVENOUS
     Route: 042
     Dates: start: 20040329, end: 20040329
  2. REMICADE [Suspect]
     Indication: RHEUMATOID ARTHRITIS
     Dosage: 400 MG, INTRAVENOUS
     Route: 042
     Dates: start: 20020601
  3. REMICADE [Suspect]
     Indication: RHEUMATOID ARTHRITIS
     Dosage: 400 MG, INTRAVENOUS
     Route: 042
     Dates: start: 20030120
  4. REMICADE [Suspect]
     Indication: RHEUMATOID ARTHRITIS
     Dosage: 400 MG, INTRAVENOUS
     Route: 042
     Dates: start: 20030317
  5. REMICADE [Suspect]
     Indication: RHEUMATOID ARTHRITIS
     Dosage: 400 MG, INTRAVENOUS
     Route: 042
     Dates: start: 20030512
  6. REMICADE [Suspect]
     Indication: RHEUMATOID ARTHRITIS
     Dosage: 400 MG, INTRAVENOUS
     Route: 042
     Dates: start: 20030821
  7. REMICADE [Suspect]
     Indication: RHEUMATOID ARTHRITIS
     Dosage: 400 MG, INTRAVENOUS
     Route: 042
     Dates: start: 20031002
  8. REMICADE [Suspect]
     Indication: RHEUMATOID ARTHRITIS
     Dosage: 400 MG, INTRAVENOUS
     Route: 042
     Dates: start: 20031113
  9. REMICADE [Suspect]
     Indication: RHEUMATOID ARTHRITIS
     Dosage: 400 MG, INTRAVENOUS
     Route: 042
     Dates: start: 20031223
  10. REMICADE [Suspect]
     Indication: RHEUMATOID ARTHRITIS
     Dosage: 400 MG, INTRAVENOUS
     Route: 042
     Dates: start: 20040217
  11. METHOTREXATE [Concomitant]
  12. NORVASC [Concomitant]
  13. LIPITOR [Concomitant]
  14. PROZAC [Concomitant]
  15. FOLIC ACID [Concomitant]
  16. ESTROGEN CREAM (ESTROGEN NOS) [Concomitant]
  17. NAPROSYN [Concomitant]
  18. PREDNISONE TAB [Concomitant]
  19. SULINDAC [Concomitant]

REACTIONS (10)
  - ABSCESS NECK [None]
  - ALLODYNIA [None]
  - ARTHRALGIA [None]
  - EXTRADURAL ABSCESS [None]
  - HYPERTENSION [None]
  - NECK PAIN [None]
  - PARALYSIS [None]
  - PYURIA [None]
  - QUADRIPLEGIA [None]
  - STAPHYLOCOCCAL INFECTION [None]
